FAERS Safety Report 25745363 (Version 1)
Quarter: 2025Q3

REPORT INFORMATION
  Report Type: Spontaneous
  Country: US (occurrence: US)
  Receive Date: 20250901
  Receipt Date: 20250901
  Transmission Date: 20251021
  Serious: Yes (Other)
  Sender: AUROBINDO
  Company Number: US-AUROBINDO-AUR-APL-2025-044187

PATIENT
  Age: 17 Year
  Sex: Male

DRUGS (1)
  1. FINGOLIMOD [Suspect]
     Active Substance: FINGOLIMOD
     Indication: Multiple sclerosis
     Dosage: 0.5 MILLIGRAM, ONCE A DAY
     Route: 065

REACTIONS (4)
  - Rebound effect [Unknown]
  - Treatment noncompliance [Unknown]
  - Intentional product misuse [Unknown]
  - Depression [Unknown]
